FAERS Safety Report 22380489 (Version 2)
Quarter: 2023Q2

REPORT INFORMATION
  Report Type: Spontaneous
  Country: SE (occurrence: SE)
  Receive Date: 20230529
  Receipt Date: 20230612
  Transmission Date: 20230722
  Serious: Yes (Hospitalization, Disabling, Congenital Anomaly)
  Sender: FDA-Public Use
  Company Number: None

PATIENT
  Age: 1 Year
  Sex: Male

DRUGS (1)
  1. LAMOTRIGINE [Suspect]
     Active Substance: LAMOTRIGINE
     Indication: Foetal exposure during pregnancy
     Dosage: UNK (MATERNAL DOSE: 100 MG QD (1X1) FROM 02 MAY 2020 FOR BIPOLAR DISORDER)
     Route: 064

REACTIONS (4)
  - Congenital tracheomalacia [Unknown]
  - Tracheomalacia [Unknown]
  - Bicuspid aortic valve [Unknown]
  - Foetal exposure during pregnancy [Unknown]
